FAERS Safety Report 8976652 (Version 2)
Quarter: 2012Q4

REPORT INFORMATION
  Report Type: 
  Country: US (occurrence: US)
  Receive Date: 20121220
  Receipt Date: 20121228
  Transmission Date: 20130627
  Serious: No
  Sender: FDA-Public Use
  Company Number: US-VERTEX PHARMACEUTICALS INC.-2012-026245

PATIENT
  Sex: Female
  Weight: 66 kg

DRUGS (8)
  1. VX-950 (TELAPREVIR) [Suspect]
     Indication: HEPATITIS C
     Dosage: 750 mg, tid
     Route: 048
     Dates: start: 20121025, end: 201212
  2. PEGASYS [Suspect]
     Indication: HEPATITIS C
     Dosage: 180 ?g, qw
     Route: 058
     Dates: start: 20121025
  3. RIBASPHERE [Suspect]
     Indication: HEPATITIS C
     Dosage: 600 mg,am and 400 mg pm
     Route: 048
     Dates: start: 20121025, end: 201212
  4. PROTONIX DR [Concomitant]
     Dosage: 40 mg, qd
     Route: 048
  5. AMBIEN [Concomitant]
     Dosage: 10 mg, qd
     Route: 048
  6. PREMARIN [Concomitant]
     Dosage: 0.625 mg, qd
     Route: 048
  7. TOPROL XL [Concomitant]
     Dosage: 100 mg, qd
     Route: 048
  8. CARDIZEM CD [Concomitant]
     Dosage: 300 mg, qd
     Route: 048

REACTIONS (3)
  - Skin ulcer [Unknown]
  - Stomatitis [Unknown]
  - Rash [Unknown]
